FAERS Safety Report 16134559 (Version 4)
Quarter: 2019Q2

REPORT INFORMATION
  Report Type: Report from Study
  Country: US (occurrence: US)
  Receive Date: 20190329
  Receipt Date: 20190612
  Transmission Date: 20190711
  Serious: Yes (Other)
  Sender: FDA-Public Use
  Company Number: US-JNJFOC-20190338863

PATIENT
  Age: 60 Year
  Sex: Male

DRUGS (5)
  1. TOPIRAMATE. [Concomitant]
     Active Substance: TOPIRAMATE
  2. GABAPENTIN. [Concomitant]
     Active Substance: GABAPENTIN
  3. TOPAMAX [Concomitant]
     Active Substance: TOPIRAMATE
  4. KEPPRA [Concomitant]
     Active Substance: LEVETIRACETAM
  5. IMBRUVICA [Suspect]
     Active Substance: IBRUTINIB
     Indication: WALDENSTROM^S MACROGLOBULINAEMIA
     Route: 048
     Dates: start: 20190226

REACTIONS (10)
  - Sleep talking [Recovered/Resolved]
  - Feeling abnormal [Unknown]
  - Hypersomnia [Recovered/Resolved]
  - Loss of consciousness [Recovering/Resolving]
  - Memory impairment [Not Recovered/Not Resolved]
  - Head injury [Recovered/Resolved]
  - Product dose omission [Recovered/Resolved]
  - Diarrhoea [Unknown]
  - Amnesia [Not Recovered/Not Resolved]
  - Asthenia [Not Recovered/Not Resolved]

NARRATIVE: CASE EVENT DATE: 201902
